FAERS Safety Report 5142751-X (Version None)
Quarter: 2006Q4

REPORT INFORMATION
  Report Type: 
  Country: None (occurrence: None)
  Receive Date: 20061102
  Receipt Date: 20061025
  Transmission Date: 20070319
  Serious: Yes (Other)
  Sender: FDA-Public Use
  Company Number: 2006UW20682

PATIENT
  Age: 85 Year
  Sex: Male

DRUGS (12)
  1. SEROQUEL [Suspect]
     Dosage: 25 MG THREE DAILY
     Route: 048
  2. HYDROCHLOROTHIAZIDE [Suspect]
     Route: 048
  3. RISPERDAL [Suspect]
     Dosage: 0.125 MG TWO DAILY
     Route: 048
  4. ARICEPT [Concomitant]
  5. ASPIRIN [Concomitant]
  6. CELEXA [Concomitant]
  7. FEERROUS GLUCONATE [Concomitant]
  8. LESCOL [Concomitant]
  9. LISINOPRIL [Concomitant]
  10. METOPROLOL TARTRATE [Concomitant]
  11. PARIET [Concomitant]
  12. VITAMIN D [Concomitant]

REACTIONS (3)
  - DIZZINESS [None]
  - FALL [None]
  - HYPONATRAEMIA [None]
